FAERS Safety Report 25489013 (Version 1)
Quarter: 2025Q2

REPORT INFORMATION
  Report Type: Spontaneous
  Country: US (occurrence: US)
  Receive Date: 20250627
  Receipt Date: 20250627
  Transmission Date: 20250717
  Serious: Yes (Death, Hospitalization, Other)
  Sender: BIOGEN
  Company Number: US-BIOGEN-2025BI01314978

PATIENT
  Age: 18 Year
  Sex: Female

DRUGS (3)
  1. SPINRAZA [Suspect]
     Active Substance: NUSINERSEN
     Indication: Product used for unknown indication
     Route: 050
  2. VIJOICE [Suspect]
     Active Substance: ALPELISIB
     Indication: Haemorrhage prophylaxis
     Route: 050
  3. ENTYVIO [Concomitant]
     Active Substance: VEDOLIZUMAB
     Indication: Product used for unknown indication
     Route: 050

REACTIONS (11)
  - Death [Fatal]
  - Colitis ulcerative [Unknown]
  - Pneumothorax [Unknown]
  - Cardio-respiratory arrest [Unknown]
  - Blood potassium decreased [Unknown]
  - Arrhythmia [Unknown]
  - Haemoglobin decreased [Unknown]
  - Blood albumin decreased [Unknown]
  - Blood calcium decreased [Unknown]
  - Oxygen saturation decreased [Unknown]
  - Blood pressure decreased [Unknown]

NARRATIVE: CASE EVENT DATE: 20250619
